FAERS Safety Report 5356954-2 (Version None)
Quarter: 2007Q2

REPORT INFORMATION
  Report Type: 
  Country: None (occurrence: None)
  Receive Date: 20070530
  Receipt Date: 20070315
  Transmission Date: 20071010
  Serious: Yes (Hospitalization, Other)
  Sender: FDA-Public Use
  Company Number: US200701004365

PATIENT
  Age: 34 Year
  Sex: Female
  Weight: 77.1 kg

DRUGS (2)
  1. ZYPREXA [Suspect]
     Dosage: 5 MG, 2.5 MG, ORAL
     Route: 048
     Dates: end: 20030706
  2. ZYPREXA [Suspect]
     Dosage: 5 MG, 2.5 MG, ORAL
     Route: 048
     Dates: start: 20030319

REACTIONS (2)
  - DIABETES MELLITUS [None]
  - PANCREATITIS [None]
